FAERS Safety Report 5716953-5 (Version None)
Quarter: 2008Q2

REPORT INFORMATION
  Report Type: 
  Country: None (occurrence: None)
  Receive Date: 20080424
  Receipt Date: 20080417
  Transmission Date: 20081010
  Serious: Yes (Hospitalization, Other)
  Sender: FDA-Public Use
  Company Number: US-MERCK-0804USA03792

PATIENT
  Age: 62 Year
  Sex: Female

DRUGS (3)
  1. ZETIA [Suspect]
     Indication: BLOOD CHOLESTEROL INCREASED
     Route: 048
     Dates: start: 20070101, end: 20080321
  2. WELCHOL [Concomitant]
     Route: 065
  3. FLUDROCORTISONE ACETATE [Concomitant]
     Route: 065

REACTIONS (4)
  - ARTHRALGIA [None]
  - ARTHROPATHY [None]
  - DRUG INEFFECTIVE [None]
  - STAPHYLOCOCCAL INFECTION [None]
